FAERS Safety Report 6617874-6 (Version None)
Quarter: 2010Q1

REPORT INFORMATION
  Report Type: 
  Country: None (occurrence: None)
  Receive Date: 20100308
  Receipt Date: 20100224
  Transmission Date: 20100710
  Serious: Yes (Other)
  Sender: FDA-Public Use
  Company Number: US-ELI_LILLY_AND_COMPANY-US201003000168

PATIENT
  Age: 45 Year
  Sex: Female

DRUGS (17)
  1. CYMBALTA [Suspect]
     Indication: DEPRESSION
     Dosage: 60 MG, 2/D
     Dates: start: 20080401
  2. IRON [Concomitant]
  3. VALIUM [Concomitant]
  4. AMITRIPTYLINE HCL [Concomitant]
  5. GABAPENTIN [Concomitant]
  6. DOXYCYCLINE [Concomitant]
  7. PREVACID [Concomitant]
  8. METANX [Concomitant]
  9. HYOSCYAMINE [Concomitant]
  10. PERCOCET [Concomitant]
     Dosage: 7.5 MG, UNK
  11. ESTROGEN NOS [Concomitant]
  12. ARTHROTEC [Concomitant]
  13. LABETALOL HCL [Concomitant]
  14. PHENERGAN HCL [Concomitant]
  15. VITAMIN D [Concomitant]
  16. SYNTHROID [Concomitant]
  17. OSCAL [Concomitant]

REACTIONS (11)
  - ABDOMINAL PAIN [None]
  - CRYING [None]
  - DIARRHOEA [None]
  - DRUG DEPENDENCE [None]
  - DRUG WITHDRAWAL SYNDROME [None]
  - ENDOMETRIOSIS [None]
  - ENTEROCOCCAL INFECTION [None]
  - HIATUS HERNIA [None]
  - OVARIAN CYST [None]
  - PANIC ATTACK [None]
  - THYROID NEOPLASM [None]
